FAERS Safety Report 13281858 (Version 2)
Quarter: 2017Q1

REPORT INFORMATION
  Report Type: Report from Study
  Country: US (occurrence: US)
  Receive Date: 20170301
  Receipt Date: 20170314
  Transmission Date: 20170428
  Serious: Yes (Other)
  Sender: FDA-Public Use
  Company Number: US-AMGEN-USASL2017029647

PATIENT
  Age: 62 Year
  Sex: Female

DRUGS (1)
  1. ENBREL [Suspect]
     Active Substance: ETANERCEPT
     Indication: RHEUMATOID ARTHRITIS
     Dosage: 50 MG, ONCE EVERY 10 DAYS
     Route: 065
     Dates: start: 2015

REACTIONS (8)
  - Injection site pain [Unknown]
  - Off label use [Unknown]
  - Rheumatoid arthritis [Not Recovered/Not Resolved]
  - Migraine [Recovering/Resolving]
  - Stomatitis [Recovered/Resolved]
  - Wrong technique in product usage process [Unknown]
  - Incorrect product storage [Unknown]
  - Underdose [Unknown]

NARRATIVE: CASE EVENT DATE: 2015
